FAERS Safety Report 14262435 (Version 1)
Quarter: 2017Q4

REPORT INFORMATION
  Report Type: Spontaneous
  Country: US (occurrence: US)
  Receive Date: 20171208
  Receipt Date: 20171208
  Transmission Date: 20180321
  Serious: No
  Sender: FDA-Public Use
  Company Number: US-KYOWAKIRIN-2017BKK001696

PATIENT

DRUGS (1)
  1. SANCUSO [Suspect]
     Active Substance: GRANISETRON
     Indication: NAUSEA
     Dosage: 1 PATCH, 1X/WEEK
     Route: 062
     Dates: start: 2016

REACTIONS (6)
  - Product use in unapproved indication [Unknown]
  - Product adhesion issue [Unknown]
  - Application site erythema [Unknown]
  - Wrong technique in product usage process [Unknown]
  - Application site pruritus [Unknown]
  - Hyperhidrosis [Unknown]
